FAERS Safety Report 9572033 (Version 2)
Quarter: 2013Q4

REPORT INFORMATION
  Report Type: Spontaneous
  Country: FR (occurrence: FR)
  Receive Date: 20131001
  Receipt Date: 20131004
  Transmission Date: 20140711
  Serious: Yes (Other)
  Sender: FDA-Public Use
  Company Number: FR-UCBSA-099226

PATIENT
  Age: 35 Year
  Sex: Female

DRUGS (3)
  1. CIMZIA [Suspect]
     Indication: ANKYLOSING SPONDYLITIS
     Route: 058
     Dates: start: 201203
  2. ENBREL [Concomitant]
     Indication: ANKYLOSING SPONDYLITIS
     Dosage: UNSPECIFIED DOSE
  3. ENBREL [Concomitant]
     Indication: ARTHRALGIA
     Dosage: UNSPECIFIED DOSE

REACTIONS (1)
  - Crohn^s disease [Unknown]
